FAERS Safety Report 9248391 (Version 1)
Quarter: 2013Q2

REPORT INFORMATION
  Report Type: Spontaneous
  Country: US (occurrence: US)
  Receive Date: 20130423
  Receipt Date: 20130423
  Transmission Date: 20140414
  Serious: Yes (Other)
  Sender: FDA-Public Use
  Company Number: US-JNJFOC-20130410869

PATIENT
  Age: 82 Year
  Sex: Female

DRUGS (1)
  1. DOXORUBICIN [Suspect]
     Indication: OVARIAN CANCER METASTATIC
     Dosage: 1-15 CYCLES
     Route: 042

REACTIONS (1)
  - Thrombotic microangiopathy [Unknown]
